FAERS Safety Report 15060680 (Version 1)
Quarter: 2018Q2

REPORT INFORMATION
  Report Type: Spontaneous
  Country: US (occurrence: US)
  Receive Date: 20180605
  Receipt Date: 20180605
  Transmission Date: 20180711
  Serious: Yes (Disabling)
  Sender: FDA-Public Use
  Company Number: None

PATIENT
  Age: 89 Year
  Sex: Female
  Weight: 77.11 kg

DRUGS (24)
  1. BENZONATATE. [Concomitant]
     Active Substance: BENZONATATE
  2. CLONIDINE. [Concomitant]
     Active Substance: CLONIDINE
  3. INSULIN GLARGINE [Concomitant]
     Active Substance: INSULIN GLARGINE
  4. NITROGLYCERIN. [Concomitant]
     Active Substance: NITROGLYCERIN
  5. BRILINTA [Suspect]
     Active Substance: TICAGRELOR
     Indication: HYPOACUSIS
     Dosage: ?          QUANTITY:1 DF DOSAGE FORM;?
     Route: 048
     Dates: start: 20180212, end: 20180212
  6. ATORVASTATIN [Concomitant]
     Active Substance: ATORVASTATIN
  7. FERROUS SULFATE. [Concomitant]
     Active Substance: FERROUS SULFATE
  8. FUROSEMIDE. [Concomitant]
     Active Substance: FUROSEMIDE
  9. METOPROLOLSUCCINATE [Concomitant]
  10. POTASSIUM CHLORIDE. [Concomitant]
     Active Substance: POTASSIUM CHLORIDE
  11. FOLIC ACID. [Concomitant]
     Active Substance: FOLIC ACID
  12. AMLODIPINE [Concomitant]
     Active Substance: AMLODIPINE BESYLATE
  13. GLIPIZIDE XL [Concomitant]
     Active Substance: GLIPIZIDE
  14. SPIRONOLACTONE. [Concomitant]
     Active Substance: SPIRONOLACTONE
  15. LEVOTHYROXINE. [Concomitant]
     Active Substance: LEVOTHYROXINE
  16. VITAMIN B12 [Concomitant]
     Active Substance: CYANOCOBALAMIN
  17. ASPIRIN. [Concomitant]
     Active Substance: ASPIRIN
  18. GLUCOSAMINE CHONDR [Concomitant]
  19. CEPHALEXIN. [Concomitant]
     Active Substance: CEPHALEXIN
  20. NYSTATIN. [Concomitant]
     Active Substance: NYSTATIN
  21. BRILINTA [Suspect]
     Active Substance: TICAGRELOR
     Indication: THROMBOSIS PROPHYLAXIS
     Dosage: ?          QUANTITY:1 DF DOSAGE FORM;?
     Route: 048
     Dates: start: 20180212, end: 20180212
  22. ACETAMINOPHEN. [Concomitant]
     Active Substance: ACETAMINOPHEN
  23. ESTRADIOL. [Concomitant]
     Active Substance: ESTRADIOL
  24. LISINOPRIL. [Concomitant]
     Active Substance: LISINOPRIL

REACTIONS (7)
  - Dyspnoea [None]
  - Feeling abnormal [None]
  - Restlessness [None]
  - Back pain [None]
  - Deafness transitory [None]
  - Incoherent [None]
  - Nightmare [None]

NARRATIVE: CASE EVENT DATE: 20180313
